FAERS Safety Report 4774230-3 (Version None)
Quarter: 2005Q3

REPORT INFORMATION
  Report Type: 
  Country: None (occurrence: None)
  Receive Date: 20050914
  Receipt Date: 20041129
  Transmission Date: 20060218
  Serious: Yes (Hospitalization)
  Sender: FDA-Public Use
  Company Number: 163-20785-04110619

PATIENT
  Age: 56 Year
  Sex: Male

DRUGS (7)
  1. THALOMID [Suspect]
     Indication: MULTIPLE MYELOMA
     Dosage: 200 MG, QHS, ORAL
     Route: 048
     Dates: start: 20040824, end: 20050103
  2. HUMALOG [Concomitant]
  3. LANTUS [Concomitant]
  4. PANCREASE (PANCRELIPASE) [Concomitant]
  5. NEURONTIN [Concomitant]
  6. MICROZIDE [Concomitant]
  7. FAMOTIDINE [Concomitant]

REACTIONS (4)
  - DERMATITIS EXFOLIATIVE [None]
  - LOCALISED INFECTION [None]
  - NEUROPATHY PERIPHERAL [None]
  - SKIN EXFOLIATION [None]
